FAERS Safety Report 5166509-0 (Version None)
Quarter: 2006Q4

REPORT INFORMATION
  Report Type: 
  Country: None (occurrence: None)
  Receive Date: 20061207
  Receipt Date: 20010724
  Transmission Date: 20070319
  Serious: Yes (Hospitalization)
  Sender: FDA-Public Use
  Company Number: 10927960

PATIENT
  Sex: Female
  Weight: 1 kg

DRUGS (12)
  1. ZERIT [Suspect]
     Route: 064
     Dates: end: 20010515
  2. RETROVIR [Suspect]
     Dosage: 3 MG/KG/24H
     Route: 042
  3. RETROVIR [Suspect]
     Route: 064
     Dates: end: 20010515
  4. NORVIR [Suspect]
     Route: 064
     Dates: end: 20010515
  5. EPIVIR [Suspect]
     Route: 064
     Dates: end: 20010515
  6. URSOLVAN [Suspect]
     Route: 064
     Dates: start: 20010801, end: 20010515
  7. FENTANYL [Concomitant]
  8. CLAMOXYL [Concomitant]
  9. CLAFORAN [Concomitant]
  10. NETROMYCIN [Concomitant]
  11. FLAGYL [Concomitant]
     Dates: start: 20010519, end: 20010521
  12. CUROSURF [Concomitant]

REACTIONS (12)
  - ANAEMIA MACROCYTIC [None]
  - ASCITES [None]
  - BLOOD CREATININE INCREASED [None]
  - BLOOD SODIUM DECREASED [None]
  - FOETAL GROWTH RETARDATION [None]
  - HYPERTRIGLYCERIDAEMIA [None]
  - INTRAVENTRICULAR HAEMORRHAGE [None]
  - NEONATAL ASPIRATION [None]
  - NEONATAL RESPIRATORY DISTRESS SYNDROME [None]
  - NEUTROPENIA [None]
  - PERITONITIS [None]
  - PREMATURE BABY [None]
